FAERS Safety Report 9416640 (Version 1)
Quarter: 2013Q3

REPORT INFORMATION
  Report Type: Spontaneous
  Country: CA (occurrence: None)
  Receive Date: 20130719
  Receipt Date: 20130719
  Transmission Date: 20140515
  Serious: Yes (Hospitalization)
  Sender: FDA-Public Use
  Company Number: 2013CA0292

PATIENT
  Age: 17 Year
  Sex: Female

DRUGS (2)
  1. ANAKINRA [Suspect]
     Indication: STILL^S DISEASE ADULT ONSET
     Dosage: 100 MG 1 IN 1 D
     Route: 058
  2. PREDNISONE ( PREDNISONE) [Concomitant]

REACTIONS (6)
  - Pyrexia [None]
  - Nausea [None]
  - Vomiting [None]
  - Diarrhoea [None]
  - Lung infiltration [None]
  - Influenza like illness [None]
